FAERS Safety Report 10067906 (Version 1)
Quarter: 2014Q2

REPORT INFORMATION
  Report Type: Spontaneous
  Country: US (occurrence: US)
  Receive Date: 20140409
  Receipt Date: 20140409
  Transmission Date: 20141212
  Serious: Yes (Disabling)
  Sender: FDA-Public Use
  Company Number: US-JNJFOC-20140401658

PATIENT
  Age: 62 Year
  Sex: Male

DRUGS (20)
  1. ABIRATERONE ACETATE [Suspect]
     Indication: PROSTATE CANCER
     Route: 048
     Dates: start: 20120522
  2. ABIRATERONE ACETATE [Suspect]
     Indication: PROSTATE CANCER
     Route: 048
     Dates: start: 20120718
  3. PREDNISONE [Suspect]
     Indication: PROSTATE CANCER
     Route: 048
     Dates: start: 20120519
  4. PREDNISONE [Suspect]
     Indication: PROSTATE CANCER
     Route: 048
     Dates: start: 20120718
  5. GDC-0980 [Suspect]
     Indication: PROSTATE CANCER
     Route: 048
     Dates: start: 20120711, end: 20120711
  6. GDC-0980 [Suspect]
     Indication: PROSTATE CANCER
     Route: 048
     Dates: start: 20120522, end: 20120522
  7. ZOLADEX [Concomitant]
     Indication: PROSTATE CANCER
     Route: 058
     Dates: start: 20050420
  8. IBUPROFEN [Concomitant]
     Indication: PAIN
     Route: 048
     Dates: start: 20120605, end: 20120727
  9. VICODIN [Concomitant]
     Indication: PAIN
     Dosage: 5/235 (1 UNIT NOT REPORTED); DURATION WAS 53 DAYS
     Route: 048
     Dates: start: 20120605, end: 20120727
  10. VICODIN [Concomitant]
     Indication: PAIN
     Dosage: 1 YEAR
     Route: 048
     Dates: start: 2011, end: 20120605
  11. BACLOFEN [Concomitant]
     Indication: PAIN
     Route: 048
     Dates: start: 20120605, end: 20120727
  12. BACLOFEN [Concomitant]
     Indication: PAIN
     Route: 048
     Dates: start: 20120522, end: 20120605
  13. CLONAZEPAM [Concomitant]
     Indication: ANXIETY
     Route: 048
     Dates: start: 2007
  14. XGEVA [Concomitant]
     Route: 058
     Dates: start: 20110809
  15. VITAMIN C [Concomitant]
     Route: 048
  16. POTASSIUM CHLORIDE [Concomitant]
     Indication: HYPOKALAEMIA
     Dosage: 20 UNIT NOT REPORTED
     Route: 048
     Dates: start: 20120717, end: 20120718
  17. LORAZEPAM [Concomitant]
     Route: 065
     Dates: start: 20120529
  18. METFORMIN [Concomitant]
     Indication: HYPERGLYCAEMIA
     Route: 048
  19. METFORMIN [Concomitant]
     Indication: HYPERGLYCAEMIA
     Route: 048
  20. METFORMIN [Concomitant]
     Indication: HYPERGLYCAEMIA
     Route: 048

REACTIONS (4)
  - Vision blurred [Recovered/Resolved]
  - Hyperglycaemia [Recovered/Resolved]
  - Rash maculo-papular [Recovered/Resolved]
  - Rash [Recovered/Resolved]
